FAERS Safety Report 26205828 (Version 1)
Quarter: 2025Q4

REPORT INFORMATION
  Report Type: Spontaneous
  Country: US (occurrence: US)
  Receive Date: 20251229
  Receipt Date: 20251229
  Transmission Date: 20260118
  Serious: Yes (Other)
  Sender: BIOVITRUM
  Company Number: US-BIOVITRUM-2025-US-012656

PATIENT
  Age: 40 Year
  Sex: Female

DRUGS (4)
  1. KINERET [Suspect]
     Active Substance: ANAKINRA
     Indication: Polychondritis
     Dosage: DAILY
     Route: 058
     Dates: start: 20240326
  2. KINERET [Suspect]
     Active Substance: ANAKINRA
     Dosage: EVERY 8 HOURS
     Route: 058
     Dates: start: 20240326
  3. ILARIS [Concomitant]
     Active Substance: CANAKINUMAB
     Indication: Product used for unknown indication
  4. RINVOQ [Concomitant]
     Active Substance: UPADACITINIB
     Indication: Product used for unknown indication

REACTIONS (5)
  - Pain [Unknown]
  - Kidney infection [Unknown]
  - Injection site bruising [Unknown]
  - Dyspnoea [Unknown]
  - Product dose omission issue [Unknown]
